FAERS Safety Report 5104255-X (Version None)
Quarter: 2006Q3

REPORT INFORMATION
  Report Type: 
  Country: None (occurrence: None)
  Receive Date: 20060911
  Receipt Date: 20060830
  Transmission Date: 20061208
  Serious: Yes (Hospitalization, Disabling)
  Sender: FDA-Public Use
  Company Number: 227556

PATIENT
  Age: 64 Year
  Sex: Male
  Weight: 92 kg

DRUGS (1)
  1. RANIBIZUMAB              (RANIBIZUMAB) [Suspect]
     Indication: MACULAR DEGENERATION
     Dates: start: 20060508

REACTIONS (1)
  - RETINAL DETACHMENT [None]
